FAERS Safety Report 18560775 (Version 1)
Quarter: 2020Q4

REPORT INFORMATION
  Report Type: Spontaneous
  Country: US (occurrence: US)
  Receive Date: 20201130
  Receipt Date: 20201130
  Transmission Date: 20210114
  Serious: Yes (Other)
  Sender: FDA-Public Use
  Company Number: US-TAKEDA-2020TUS053260

PATIENT
  Age: 54 Year
  Sex: Male
  Weight: 79.9 kg

DRUGS (4)
  1. NINLARO [Suspect]
     Active Substance: IXAZOMIB CITRATE
     Indication: PLASMA CELL MYELOMA
     Dosage: 4 MILLIGRAM, 1/WEEK
     Route: 048
     Dates: start: 20201110, end: 20201112
  2. NINLARO [Suspect]
     Active Substance: IXAZOMIB CITRATE
     Dosage: 3 MILLIGRAM, Q2WEEKS
     Route: 048
  3. GABAPENTIN. [Suspect]
     Active Substance: GABAPENTIN
     Dosage: 800 MILLIGRAM
     Route: 065
  4. GABAPENTIN. [Suspect]
     Active Substance: GABAPENTIN
     Indication: PLASMA CELL MYELOMA
     Dosage: 300 MILLIGRAM
     Route: 065

REACTIONS (3)
  - Paraesthesia [Unknown]
  - Burning sensation [Unknown]
  - Off label use [Unknown]

NARRATIVE: CASE EVENT DATE: 20201112
